FAERS Safety Report 13912561 (Version 2)
Quarter: 2017Q3

REPORT INFORMATION
  Report Type: Report from Study
  Country: US (occurrence: US)
  Receive Date: 20170828
  Receipt Date: 20170906
  Transmission Date: 20171127
  Serious: Yes (Hospitalization, Other)
  Sender: FDA-Public Use
  Company Number: US-GILEAD-2017-0284454

PATIENT
  Age: 61 Year
  Sex: Female

DRUGS (3)
  1. IDELALISIB [Suspect]
     Active Substance: IDELALISIB
     Indication: CHRONIC LYMPHOCYTIC LEUKAEMIA
  2. VITAMIN C [Concomitant]
     Active Substance: ASCORBIC ACID
  3. IDELALISIB [Suspect]
     Active Substance: IDELALISIB
     Indication: B-CELL LYMPHOMA
     Dosage: 150 MG, BID
     Route: 048
     Dates: start: 20170706, end: 201708

REACTIONS (11)
  - Malaise [Not Recovered/Not Resolved]
  - Blood test abnormal [Unknown]
  - Abdominal mass [Recovered/Resolved]
  - Peripheral sensory neuropathy [Recovered/Resolved]
  - Peripheral swelling [Unknown]
  - Perihepatic discomfort [Unknown]
  - Fatigue [Unknown]
  - Nervousness [Unknown]
  - Radiation skin injury [Unknown]
  - Weight fluctuation [Unknown]
  - Drug ineffective [Recovered/Resolved]

NARRATIVE: CASE EVENT DATE: 20170714
